FAERS Safety Report 4772445-1 (Version None)
Quarter: 2005Q3

REPORT INFORMATION
  Report Type: 
  Country: None (occurrence: None)
  Receive Date: 20050914
  Receipt Date: 20050907
  Transmission Date: 20060218
  Serious: Yes (Life-Threatening, Hospitalization)
  Sender: FDA-Public Use
  Company Number: TPG2005A00360

PATIENT
  Age: 74 Year
  Sex: Male

DRUGS (6)
  1. LEUPROLIDE ACETATE [Suspect]
     Indication: PROSTATE CANCER
     Dosage: 11.25 MG (11.25 MG, 1 IN 3 M) SUBCUTANEOUS
     Route: 058
     Dates: start: 20050701
  2. ASPIRIN [Concomitant]
  3. MADOPAR [Concomitant]
  4. CORVATION SLOW RELEASE MOLSIDOMINE TABLET) [Concomitant]
  5. CONCOR (BISOPROLL FUMATRATE TABLET) [Concomitant]
  6. ALNA (TAMSULOSIN HYDROCHLORIDE) [Concomitant]

REACTIONS (7)
  - ADRENOCORTICAL INSUFFICIENCY CHRONIC [None]
  - BLOOD POTASSIUM INCREASED [None]
  - BLOOD SODIUM DECREASED [None]
  - ENCEPHALITIC INFECTION [None]
  - GENERAL PHYSICAL HEALTH DETERIORATION [None]
  - SEPSIS [None]
  - VOMITING [None]
